FAERS Safety Report 22529234 (Version 4)
Quarter: 2024Q2

REPORT INFORMATION
  Report Type: Spontaneous
  Country: US (occurrence: US)
  Receive Date: 20230607
  Receipt Date: 20240517
  Transmission Date: 20240716
  Serious: Yes (Hospitalization, Other)
  Sender: FDA-Public Use
  Company Number: US-SA-SAC20230605001416

PATIENT
  Age: 36 Year
  Sex: Male

DRUGS (6)
  1. ELOCTATE [Suspect]
     Active Substance: EFMOROCTOCOG ALFA
     Indication: Haemorrhage
     Dosage: 5500 U, QD
     Route: 065
  2. ELOCTATE [Suspect]
     Active Substance: EFMOROCTOCOG ALFA
     Indication: Haemorrhage
     Dosage: 5500 U, QD
     Route: 065
  3. ELOCTATE [Suspect]
     Active Substance: EFMOROCTOCOG ALFA
     Dosage: 5900 U, QD (5900 UNITS (+/- 10%) IV DAILY ONE TIME ON DEMAND FOR A BLEED)
  4. ELOCTATE [Suspect]
     Active Substance: EFMOROCTOCOG ALFA
     Dosage: 5900 U, QD (5900 UNITS (+/- 10%) IV DAILY ONE TIME ON DEMAND FOR A BLEED)
  5. ELOCTATE [Suspect]
     Active Substance: EFMOROCTOCOG ALFA
     Dosage: 5900 UNK, PRN (5900 UNITS (+/- 10%) IV DAILY ONE TIME ON DEMAND FOR A BLEED)
  6. ELOCTATE [Suspect]
     Active Substance: EFMOROCTOCOG ALFA
     Dosage: 5900 UNK, PRN (5900 UNITS (+/- 10%) IV DAILY ONE TIME ON DEMAND FOR A BLEED)

REACTIONS (5)
  - Traumatic haemorrhage [Not Recovered/Not Resolved]
  - Road traffic accident [Unknown]
  - Haematoma [Not Recovered/Not Resolved]
  - Haemorrhage [Unknown]
  - Contusion [Unknown]

NARRATIVE: CASE EVENT DATE: 20230522
